FAERS Safety Report 8916221 (Version 3)
Quarter: 2013Q1

REPORT INFORMATION
  Report Type: Spontaneous
  Country: JP (occurrence: JP)
  Receive Date: 20121120
  Receipt Date: 20130117
  Transmission Date: 20140127
  Serious: Yes (Hospitalization)
  Sender: FDA-Public Use
  Company Number: JP-GLAXOSMITHKLINE-B0845431A

PATIENT
  Age: 23 Year
  Sex: Male

DRUGS (1)
  1. VOTRIENT [Suspect]
     Indication: PERIPHERAL NERVE SHEATH TUMOUR MALIGNANT
     Dosage: 800MG PER DAY
     Route: 048
     Dates: start: 20121102, end: 20121109

REACTIONS (3)
  - Pleural effusion [Unknown]
  - Diarrhoea [Unknown]
  - Decreased appetite [Unknown]
